FAERS Safety Report 4501851-5 (Version None)
Quarter: 2004Q4

REPORT INFORMATION
  Report Type: 
  Country: None (occurrence: None)
  Receive Date: 20041116
  Receipt Date: 20041105
  Transmission Date: 20050328
  Serious: Yes (Hospitalization)
  Sender: FDA-Public Use
  Company Number: US-JNJFOC-20040704573

PATIENT
  Sex: Male

DRUGS (9)
  1. DURAGESIC [Suspect]
     Route: 062
     Dates: start: 20031201, end: 20040601
  2. DURAGESIC [Suspect]
     Route: 062
     Dates: start: 20031201, end: 20040601
  3. FIORICET [Concomitant]
     Dates: start: 20040101
  4. FIORICET [Concomitant]
     Dates: start: 20040101
  5. FIORICET [Concomitant]
     Indication: HEADACHE
     Dates: start: 20040101
  6. VICODIN [Concomitant]
     Dates: start: 20040101
  7. VICODIN [Concomitant]
     Indication: HEADACHE
     Dates: start: 20040101
  8. CLONAZEPAM [Concomitant]
     Dates: start: 20040101
  9. CLONAZEPAM [Concomitant]
     Indication: ANXIETY
     Dates: start: 20040101

REACTIONS (3)
  - DEPRESSION [None]
  - SOMNOLENCE [None]
  - SUICIDAL IDEATION [None]
